FAERS Safety Report 7465801 (Version 4)
Quarter: 2013Q3

REPORT INFORMATION
  Report Type: Spontaneous
  Country: GB (occurrence: GB)
  Receive Date: 20100712
  Receipt Date: 20130812
  Transmission Date: 20140515
  Serious: Yes (Hospitalization, Disabling)
  Sender: FDA-Public Use
  Company Number: PHFR2010GB01161

PATIENT
  Sex: Male

DRUGS (8)
  1. CLOZARIL [Suspect]
     Dosage: 900 MG
     Route: 048
     Dates: start: 20090811
  2. DEPAKOTE [Concomitant]
     Indication: SCHIZOPHRENIA
     Dosage: 3 G
     Route: 048
  3. AMISULPRIDE [Concomitant]
     Indication: SCHIZOPHRENIA
     Dosage: 100 MG
     Route: 048
  4. DIAZEPAM [Concomitant]
     Indication: SCHIZOPHRENIA
     Dosage: 5 MG
     Route: 048
  5. THYROXINE [Concomitant]
     Indication: HYPERTHYROIDISM
     Dosage: 100 UG,
     Route: 048
  6. CARBIMAZOLE [Concomitant]
     Indication: HYPERTHYROIDISM
     Dosage: 40 MG
     Route: 048
  7. CO-CODAMOL [Concomitant]
     Indication: BONE DISORDER
     Dosage: 8 DF
     Route: 048
  8. LINEZOLID [Concomitant]
     Dosage: UNK

REACTIONS (2)
  - Osteomyelitis [Unknown]
  - Bone disorder [Unknown]
